FAERS Safety Report 9857075 (Version 2)
Quarter: 2014Q1

REPORT INFORMATION
  Report Type: Report from Study
  Country: CA (occurrence: CA)
  Receive Date: 20140130
  Receipt Date: 20140130
  Transmission Date: 20141002
  Serious: Yes (Other)
  Sender: FDA-Public Use
  Company Number: CA-ABBVIE-13P-028-1136442-00

PATIENT
  Sex: Female

DRUGS (2)
  1. HUMIRA [Suspect]
     Indication: COLITIS ULCERATIVE
     Route: 058
     Dates: start: 20100528, end: 20131028
  2. HUMIRA [Suspect]
     Route: 058
     Dates: start: 20131202

REACTIONS (3)
  - Thyroid neoplasm [Recovered/Resolved]
  - Thyroid cancer [Recovered/Resolved]
  - Paraganglion neoplasm benign [Unknown]
